FAERS Safety Report 6093737-2 (Version None)
Quarter: 2009Q1

REPORT INFORMATION
  Report Type: 
  Country: None (occurrence: None)
  Receive Date: 20090223
  Receipt Date: 20090223
  Transmission Date: 20090719
  Serious: Yes (Life-Threatening)
  Sender: FDA-Public Use
  Company Number: None

PATIENT
  Age: 22 Year
  Sex: Male
  Weight: 68.4932 kg

DRUGS (1)
  1. ADDERALL XR 20 [Suspect]
     Dosage: PO
     Route: 048

REACTIONS (5)
  - DRUG INTERACTION [None]
  - FEELING ABNORMAL [None]
  - HODGKIN'S DISEASE [None]
  - INFLUENZA LIKE ILLNESS [None]
  - NECK MASS [None]
